FAERS Safety Report 15492204 (Version 1)
Quarter: 2018Q4

REPORT INFORMATION
  Report Type: Report from Study
  Country: PE (occurrence: PE)
  Receive Date: 20181012
  Receipt Date: 20181012
  Transmission Date: 20190205
  Serious: Yes (Disabling)
  Sender: FDA-Public Use
  Company Number: PE-IPSEN BIOPHARMACEUTICALS, INC.-2018-15369

PATIENT
  Age: 57 Year
  Sex: Male
  Weight: 70 kg

DRUGS (2)
  1. MELOXICAM. [Concomitant]
     Active Substance: MELOXICAM
     Indication: OEDEMA
     Route: 030
     Dates: start: 20180924, end: 20180928
  2. DYSPORT [Suspect]
     Active Substance: ABOBOTULINUMTOXINA
     Indication: NEUROGENIC BLADDER
     Dosage: SITE OF INJECTION: BLADDER
     Route: 065
     Dates: start: 20180706

REACTIONS (1)
  - Fibula fracture [Recovering/Resolving]

NARRATIVE: CASE EVENT DATE: 20180924
